FAERS Safety Report 21667933 (Version 1)
Quarter: 2022Q4

REPORT INFORMATION
  Report Type: Spontaneous
  Country: US (occurrence: US)
  Receive Date: 20221201
  Receipt Date: 20221201
  Transmission Date: 20230113
  Serious: No
  Sender: FDA-Public Use
  Company Number: US-BAYER-2022A164936

PATIENT

DRUGS (1)
  1. ALEVE BACK AND MUSCLE PAIN [Suspect]
     Active Substance: NAPROXEN SODIUM
     Indication: Bursitis
     Route: 048

REACTIONS (2)
  - Expired product administered [Unknown]
  - Product use in unapproved indication [None]
